FAERS Safety Report 20799883 (Version 1)
Quarter: 2022Q2

REPORT INFORMATION
  Report Type: Spontaneous
  Country: US (occurrence: US)
  Receive Date: 20220509
  Receipt Date: 20220509
  Transmission Date: 20220721
  Serious: Yes (Death, Other)
  Sender: FDA-Public Use
  Company Number: US-BAYER-2022A062747

PATIENT
  Age: 63 Year
  Sex: Female

DRUGS (14)
  1. STIVARGA [Suspect]
     Active Substance: REGORAFENIB
     Indication: Rectal cancer
     Dosage: UNK
  2. LONSURF [Suspect]
     Active Substance: TIPIRACIL HYDROCHLORIDE\TRIFLURIDINE
     Indication: Rectal cancer stage IV
     Dosage: UNK
     Dates: start: 202007, end: 20210803
  3. SODIUM CHLORIDE [Concomitant]
     Active Substance: SODIUM CHLORIDE
     Dosage: UNK
  4. DEXTROSE [Concomitant]
     Active Substance: DEXTROSE
     Dosage: UNK
  5. DIPHENHYDRAMINE HYDROCHLORIDE [Concomitant]
     Active Substance: DIPHENHYDRAMINE HYDROCHLORIDE
     Dosage: UNK
  6. SOLU-MEDROL [Concomitant]
     Active Substance: METHYLPREDNISOLONE SODIUM SUCCINATE
     Dosage: UNK
  7. PEPCID [Concomitant]
     Active Substance: FAMOTIDINE
     Dosage: UNK
  8. ADRENALIN HCL [Concomitant]
     Dosage: UNK
  9. OXYGEN [Concomitant]
     Active Substance: OXYGEN
     Dosage: UNK
  10. ATROPINE [Concomitant]
     Active Substance: ATROPINE
     Dosage: UNK
  11. CAMPTOSAR [Concomitant]
     Active Substance: IRINOTECAN HYDROCHLORIDE
     Dosage: UNK
  12. DEXAMETHASONE [Concomitant]
     Active Substance: DEXAMETHASONE
     Dosage: UNK
  13. KYTRIL [Concomitant]
     Active Substance: GRANISETRON HYDROCHLORIDE
     Dosage: UNK
  14. FLUOROURACIL\LEUCOVORIN CALCIUM\OXALIPLATIN [Concomitant]
     Active Substance: FLUOROURACIL\LEUCOVORIN CALCIUM\OXALIPLATIN
     Dosage: UNK

REACTIONS (11)
  - Rectal cancer [Fatal]
  - General physical health deterioration [None]
  - Eastern Cooperative Oncology Group performance status [None]
  - Nausea [None]
  - Constipation [None]
  - Abdominal pain [None]
  - Vomiting [None]
  - Asthenia [None]
  - Diarrhoea [None]
  - Fatigue [None]
  - Headache [None]

NARRATIVE: CASE EVENT DATE: 20201202
